FAERS Safety Report 8729594 (Version 3)
Quarter: 2012Q4

REPORT INFORMATION
  Report Type: 
  Country: BE (occurrence: BE)
  Receive Date: 20120817
  Receipt Date: 20121010
  Transmission Date: 20130627
  Serious: Yes (Hospitalization)
  Sender: FDA-Public Use
  Company Number: BE-SANOFI-AVENTIS-2012SA057403

PATIENT
  Age: 71 Year
  Sex: Female

DRUGS (9)
  1. ARAVA [Suspect]
     Indication: PSORIATIC ARTHRITIS
     Dosage: dose-1 tablet of 20mg/day
     Route: 048
  2. SELOZOK [Concomitant]
     Dosage: strength: 100mg
  3. BROMAZEPAM [Concomitant]
     Dosage: strength: 6mg
  4. TRAZOLAN [Concomitant]
     Dosage: strength: 100mg
  5. VENLAFAXINE [Concomitant]
     Dosage: strength: 75mg
  6. CLEXANE [Concomitant]
     Dosage: strength: 60mg
  7. LITICAN [Concomitant]
     Dosage: reported: 1ampoule (as needed)
  8. PARACETAMOL [Concomitant]
  9. MERONEM [Concomitant]
     Route: 042

REACTIONS (2)
  - Retroperitoneal abscess [Recovered/Resolved with Sequelae]
  - Pulmonary embolism [Recovered/Resolved with Sequelae]
